FAERS Safety Report 4594578-5 (Version None)
Quarter: 2005Q1

REPORT INFORMATION
  Report Type: 
  Country: None (occurrence: None)
  Receive Date: 20050301
  Receipt Date: 20040602
  Transmission Date: 20050727
  Serious: No
  Sender: FDA-Public Use
  Company Number: US-GLAXOSMITHKLINE-A0513265A

PATIENT
  Sex: Female

DRUGS (3)
  1. VALTREX [Suspect]
     Route: 048
  2. DIET MEDICATION [Concomitant]
  3. ACNE DRUG [Concomitant]

REACTIONS (1)
  - ORAL MUCOSAL BLISTERING [None]
